FAERS Safety Report 24377459 (Version 1)
Quarter: 2024Q3

REPORT INFORMATION
  Report Type: Spontaneous
  Country: US (occurrence: None)
  Receive Date: 20240928
  Receipt Date: 20240928
  Transmission Date: 20241017
  Serious: Yes (Other)
  Sender: Public
  Company Number: None

PATIENT
  Age: 71 Year
  Sex: Female
  Weight: 44.1 kg

DRUGS (1)
  1. SCOPOLAMINE [Suspect]
     Active Substance: SCOPOLAMINE
     Indication: Motion sickness
     Dosage: OTHER QUANTITY : 4 PATCH(ES)?OTHER FREQUENCY : EVERY 3 DAYS?
     Route: 062
     Dates: start: 20240729, end: 20240807

REACTIONS (4)
  - Panic reaction [None]
  - Confusional state [None]
  - Sleep disorder [None]
  - Amnesia [None]

NARRATIVE: CASE EVENT DATE: 20240731
